FAERS Safety Report 9212558 (Version 3)
Quarter: 2013Q3

REPORT INFORMATION
  Report Type: Spontaneous
  Country: US (occurrence: US)
  Receive Date: 20130405
  Receipt Date: 20130722
  Transmission Date: 20140515
  Serious: Yes (Hospitalization)
  Sender: FDA-Public Use
  Company Number: US-BIOGENIDEC-2013BI029828

PATIENT
  Age: 72 Year
  Sex: Male

DRUGS (1)
  1. TYSABRI [Suspect]
     Indication: MULTIPLE SCLEROSIS
     Route: 042
     Dates: start: 20110729

REACTIONS (6)
  - Fall [Recovered/Resolved]
  - Pulmonary contusion [Recovered/Resolved]
  - Pneumonia [Recovered/Resolved]
  - Asthenia [Recovered/Resolved]
  - Multiple sclerosis relapse [Recovered/Resolved]
  - Pulmonary thrombosis [Recovered/Resolved]
